FAERS Safety Report 7954056-X (Version None)
Quarter: 2011Q4

REPORT INFORMATION
  Report Type: 
  Country: None (occurrence: None)
  Receive Date: 20111202
  Receipt Date: 20111124
  Transmission Date: 20120403
  Serious: Yes (Other)
  Sender: FDA-Public Use
  Company Number: DE-AMGEN-DEUSP2011054476

PATIENT
  Age: 68 Year
  Sex: Female

DRUGS (4)
  1. AROMASIN [Concomitant]
     Indication: BREAST CANCER
     Dosage: UNK UNK, QD
     Route: 048
  2. PROLIA [Suspect]
     Dosage: UNK
     Dates: start: 20110801
  3. PROLIA [Suspect]
     Indication: OSTEOPOROSIS
     Dosage: UNK
     Route: 058
     Dates: start: 20110201
  4. HERCEPTIN [Concomitant]
     Indication: BREAST CANCER
     Dosage: UNK

REACTIONS (10)
  - MUCOUS STOOLS [None]
  - RASH [None]
  - ALOPECIA [None]
  - HAEMATOCHEZIA [None]
  - POLYP [None]
  - FALL [None]
  - HAEMOGLOBIN DECREASED [None]
  - VAGINAL HAEMORRHAGE [None]
  - RED BLOOD CELL COUNT DECREASED [None]
  - ARTHRALGIA [None]
